FAERS Safety Report 8064650-6 (Version None)
Quarter: 2012Q1

REPORT INFORMATION
  Report Type: 
  Country: None (occurrence: None)
  Receive Date: 20120123
  Receipt Date: 20120113
  Transmission Date: 20120608
  Serious: Yes (Hospitalization)
  Sender: FDA-Public Use
  Company Number: JP-ASTRAZENECA-2011SE78017

PATIENT
  Sex: Male
  Weight: 60 kg

DRUGS (8)
  1. NORVASC [Suspect]
     Indication: HYPERTENSION
     Route: 048
     Dates: end: 20111121
  2. RHEUMATREX [Suspect]
     Indication: RHEUMATOID ARTHRITIS
     Route: 048
     Dates: end: 20111117
  3. CANDESARTAN CILEXETIL [Suspect]
     Indication: HYPERTENSION
     Route: 048
     Dates: end: 20111121
  4. EPLERENONE [Suspect]
     Indication: HYPERTENSION
     Route: 048
     Dates: end: 20111121
  5. LASIX [Suspect]
     Indication: CARDIAC FAILURE
     Route: 048
     Dates: end: 20111121
  6. MEIACT MS [Suspect]
     Indication: PRODUCT USED FOR UNKNOWN INDICATION
     Route: 048
     Dates: end: 20111117
  7. ALLOPURINOL [Suspect]
     Indication: HYPERURICAEMIA
     Route: 048
     Dates: end: 20111121
  8. LOXONIN [Concomitant]
     Indication: ARTHRALGIA
     Route: 048
     Dates: end: 20111117

REACTIONS (1)
  - PANCYTOPENIA [None]
